FAERS Safety Report 17878285 (Version 9)
Quarter: 2020Q4

REPORT INFORMATION
  Report Type: Report from Study
  Country: PE (occurrence: PE)
  Receive Date: 20200610
  Receipt Date: 20201203
  Transmission Date: 20210113
  Serious: Yes (Death, Hospitalization)
  Sender: FDA-Public Use
  Company Number: PE-ROCHE-2616694

PATIENT
  Age: 59 Year
  Sex: Female
  Weight: 75 kg

DRUGS (8)
  1. ATEZOLIZUMAB. [Suspect]
     Active Substance: ATEZOLIZUMAB
     Indication: BREAST CANCER METASTATIC
     Dosage: DATE OF MOST RECENT DOSE OF ATEZOLIZUMAB PRIOR TO PULMONAR THROMBOEMBOLIA ONSET: 28/MAY/2020 (840 MG
     Route: 041
     Dates: start: 20191227
  2. IPATASERTIB. [Suspect]
     Active Substance: IPATASERTIB
     Indication: BREAST CANCER METASTATIC
     Dosage: DATE OF MOST RECENT DOSE OF IPATASERTIB 300 MG PRIOR TO AE ONSET: 04/JUN/2020?DATE OF MOST RECENT DO
     Route: 048
     Dates: start: 20191227
  3. DIMENHYDRINATE. [Concomitant]
     Active Substance: DIMENHYDRINATE
     Indication: ARTHRALGIA
     Route: 048
     Dates: start: 20191203
  4. DIMENHYDRINATE. [Concomitant]
     Active Substance: DIMENHYDRINATE
     Indication: NAUSEA
  5. TRAMADOL. [Concomitant]
     Active Substance: TRAMADOL
     Indication: ARTHRALGIA
     Route: 048
     Dates: start: 20191203
  6. PACLITAXEL. [Suspect]
     Active Substance: PACLITAXEL
     Indication: BREAST CANCER METASTATIC
     Dosage: DATE OF MOST RECENT DOSE OF PACLITAXEL PRIOR TO PULMONAR THROMBOEMBOLIA ONSET: 28/MAY/2020 (80 MG/M2
     Route: 042
     Dates: start: 20191227
  7. LOPERAMIDE [Suspect]
     Active Substance: LOPERAMIDE
     Indication: BREAST CANCER METASTATIC
     Dosage: DATE OF MOST RECENT DOSE OF LOPERAMIDE PRIOR TO AE ONSET: 07/MAY/2020 (4 MG)
     Route: 048
     Dates: start: 20191227
  8. LEVOTHYROXINE. [Concomitant]
     Active Substance: LEVOTHYROXINE
     Indication: HYPERTHYROIDISM
     Route: 048
     Dates: start: 201902

REACTIONS (2)
  - Pulmonary embolism [Fatal]
  - Myocarditis [Fatal]

NARRATIVE: CASE EVENT DATE: 20200602
